FAERS Safety Report 7936041-7 (Version None)
Quarter: 2011Q4

REPORT INFORMATION
  Report Type: 
  Country: None (occurrence: None)
  Receive Date: 20111123
  Receipt Date: 20111116
  Transmission Date: 20120403
  Serious: Yes (Other)
  Sender: FDA-Public Use
  Company Number: CA-US-EMD SERONO, INC.-7016998

PATIENT
  Sex: Female

DRUGS (3)
  1. REBIF [Suspect]
     Indication: RELAPSING-REMITTING MULTIPLE SCLEROSIS
     Route: 058
     Dates: start: 20100826
  2. REBIF [Suspect]
     Route: 058
  3. ACETAMINOPHEN [Concomitant]
     Route: 048

REACTIONS (6)
  - DISEASE PROGRESSION [None]
  - MULTIPLE SCLEROSIS [None]
  - LABYRINTHITIS [None]
  - BLOOD MAGNESIUM DECREASED [None]
  - INFLUENZA LIKE ILLNESS [None]
  - HEPATIC ENZYME INCREASED [None]
